FAERS Safety Report 18429958 (Version 2)
Quarter: 2020Q4

REPORT INFORMATION
  Report Type: Spontaneous
  Country: JP (occurrence: JP)
  Receive Date: 20201026
  Receipt Date: 20201202
  Transmission Date: 20210114
  Serious: Yes (Death, Other)
  Sender: FDA-Public Use
  Company Number: JP-009507513-2010JPN001969J

PATIENT
  Age: 57 Year
  Sex: Male
  Weight: 59 kg

DRUGS (13)
  1. OXYGEN. [Concomitant]
     Active Substance: OXYGEN
     Dosage: 1L/MIN
     Route: 065
  2. BRIDION [Suspect]
     Active Substance: SUGAMMADEX
     Indication: NEUROMUSCULAR BLOCKADE REVERSAL
     Dosage: 200 MILLIGRAM/DOSE
     Route: 042
     Dates: start: 20180521
  3. BRIDION [Suspect]
     Active Substance: SUGAMMADEX
     Dosage: 200 MILLIGRAM(3.4MG/KG)
     Route: 042
     Dates: end: 20180521
  4. ESLAX INTRAVENOUS 25MG/2.5ML [Concomitant]
     Active Substance: ROCURONIUM BROMIDE
     Indication: NEUROMUSCULAR BLOCKING THERAPY
     Dosage: 40 MILLIGRAM
     Route: 007
  5. ESLAX INTRAVENOUS 25MG/2.5ML [Concomitant]
     Active Substance: ROCURONIUM BROMIDE
     Dosage: 10 MILLIGRAM
     Route: 065
  6. REMIFENTANIL HYDROCHLORIDE. [Concomitant]
     Active Substance: REMIFENTANIL HYDROCHLORIDE
     Indication: GENERAL ANAESTHESIA
     Dosage: 0.20 MICROGRAM PER KILOGRAM
     Route: 065
  7. OXYGEN. [Concomitant]
     Active Substance: OXYGEN
     Indication: GENERAL ANAESTHESIA
     Dosage: 6L/MIN
     Route: 065
  8. REMIFENTANIL HYDROCHLORIDE. [Concomitant]
     Active Substance: REMIFENTANIL HYDROCHLORIDE
     Dosage: 0.20 MICROGRAM PER KILOGRAM
     Route: 065
  9. AZILVA [Concomitant]
     Active Substance: AZILSARTAN KAMEDOXOMIL
     Dosage: 40 MILLIGRAM/AFTER BREAKFAST
     Route: 048
  10. PROPOFOL. [Concomitant]
     Active Substance: PROPOFOL
     Indication: GENERAL ANAESTHESIA
     Dosage: 80 MILLIGRAM
     Route: 065
  11. SEVOFLURANE. [Concomitant]
     Active Substance: SEVOFLURANE
     Indication: GENERAL ANAESTHESIA
     Dosage: 5 PERCENT
     Route: 065
  12. SEVOFLURANE. [Concomitant]
     Active Substance: SEVOFLURANE
     Dosage: 5 PERCENT
     Route: 065
  13. EPHEDRIN [Concomitant]
     Active Substance: EPHEDRINE HYDROCHLORIDE
     Indication: PROCEDURAL HYPOTENSION
     Dosage: 4 MILLIGRAM
     Route: 065

REACTIONS (4)
  - Kounis syndrome [Unknown]
  - Ventricular fibrillation [Fatal]
  - Cardiac arrest [Recovered/Resolved]
  - Arteriospasm coronary [Recovering/Resolving]

NARRATIVE: CASE EVENT DATE: 20180521
